FAERS Safety Report 8778451 (Version 1)
Quarter: 2012Q4

REPORT INFORMATION
  Report Type: 
  Country: US (occurrence: US)
  Receive Date: 20120912
  Receipt Date: 20120912
  Transmission Date: 20130627
  Serious: Yes (Hospitalization)
  Sender: FDA-Public Use
  Company Number: US-ARROW-2012-15636

PATIENT
  Age: 43 Year
  Sex: Male

DRUGS (2)
  1. TACROLIMUS [Suspect]
     Indication: LUNG TRANSPLANT
     Dosage: UNK
     Route: 065
  2. CYCLOSPORINE [Suspect]
     Indication: LUNG TRANSPLANT
     Dosage: UNK
     Route: 065

REACTIONS (6)
  - Hepatotoxicity [Recovered/Resolved]
  - Cardiac tamponade [None]
  - Hepatic failure [None]
  - Renal failure [None]
  - Dialysis [None]
  - Pneumonia [None]
